FAERS Safety Report 9356428 (Version 2)
Quarter: 2013Q2

REPORT INFORMATION
  Report Type: Spontaneous
  Country: US (occurrence: US)
  Receive Date: 20130619
  Receipt Date: 20130619
  Transmission Date: 20140414
  Serious: Yes (Hospitalization)
  Sender: FDA-Public Use
  Company Number: US-ACTAVIS-2012-17887

PATIENT
  Age: 65 Year
  Sex: Female

DRUGS (1)
  1. DONEPEZIL HYDROCHLORIDE (UNKNOWN) [Suspect]
     Indication: DEMENTIA ALZHEIMER^S TYPE
     Dosage: 5 MG, DAILY
     Route: 065

REACTIONS (2)
  - Mania [Not Recovered/Not Resolved]
  - Delusion of grandeur [None]
